FAERS Safety Report 6768041-7 (Version None)
Quarter: 2010Q2

REPORT INFORMATION
  Report Type: 
  Country: None (occurrence: None)
  Receive Date: 20100614
  Receipt Date: 20100604
  Transmission Date: 20101027
  Serious: Yes (Hospitalization)
  Sender: FDA-Public Use
  Company Number: B0658259A

PATIENT
  Sex: Male
  Weight: 56 kg

DRUGS (19)
  1. ALKERAN [Suspect]
     Indication: STEM CELL TRANSPLANT
     Dosage: 220MG PER DAY
     Route: 042
     Dates: start: 20100302, end: 20100302
  2. NEUTROGIN [Concomitant]
     Dates: start: 20100305, end: 20100315
  3. OMEPRAL [Concomitant]
     Dosage: 20MG PER DAY
     Route: 048
     Dates: start: 20100218
  4. OZEX [Concomitant]
     Dosage: 150MG PER DAY
     Route: 048
     Dates: start: 20100301, end: 20100303
  5. MUCOSTA [Concomitant]
     Dosage: 200MG PER DAY
     Route: 048
     Dates: start: 20100301, end: 20100303
  6. ZOVIRAX [Concomitant]
     Dosage: 400MG PER DAY
     Route: 048
     Dates: start: 20100301, end: 20100303
  7. FUNGUARD [Concomitant]
     Dosage: 50MG PER DAY
     Route: 042
     Dates: start: 20100301, end: 20100315
  8. ACYCLOVIR [Concomitant]
     Dosage: 125MG PER DAY
     Route: 042
     Dates: start: 20100310, end: 20100315
  9. PHENOBARBITAL TAB [Concomitant]
     Dosage: 60MG PER DAY
     Route: 048
     Dates: start: 20100218
  10. BLOPRESS [Concomitant]
     Dosage: 8MG PER DAY
     Route: 048
     Dates: start: 20100218
  11. FLUVASTATIN [Concomitant]
     Dosage: 30MG PER DAY
     Route: 048
     Dates: start: 20100218
  12. PHENYTOIN SODIUM [Concomitant]
     Dosage: 140MG PER DAY
     Route: 048
     Dates: start: 20100218
  13. MAGMITT [Concomitant]
     Dosage: 990MG PER DAY
     Route: 048
     Dates: start: 20100218
  14. PURSENNID [Concomitant]
     Dosage: 24MG PER DAY
     Route: 048
     Dates: start: 20100218
  15. DUROTEP [Concomitant]
     Dosage: 4.2MG THREE TIMES PER DAY
     Route: 062
     Dates: start: 20100218
  16. CALONAL [Concomitant]
     Dosage: 400MG PER DAY
     Route: 048
     Dates: start: 20100308
  17. CRAVIT [Concomitant]
     Dosage: 250MG PER DAY
     Route: 048
     Dates: start: 20100310, end: 20100315
  18. ALLOID G [Concomitant]
     Dosage: 60ML PER DAY
     Route: 048
     Dates: start: 20100319, end: 20100322
  19. FIRSTCIN [Concomitant]
     Dosage: 1G PER DAY
     Route: 042
     Dates: start: 20100401, end: 20100408

REACTIONS (4)
  - DIARRHOEA [None]
  - FEBRILE NEUTROPENIA [None]
  - MELAENA [None]
  - PERICARDITIS [None]
